FAERS Safety Report 10087654 (Version 1)
Quarter: 2014Q2

REPORT INFORMATION
  Report Type: Spontaneous
  Country: US (occurrence: US)
  Receive Date: 20140418
  Receipt Date: 20140418
  Transmission Date: 20141212
  Serious: Yes (Other)
  Sender: FDA-Public Use
  Company Number: US-NAPPMUNDI-USA-2013-0109869

PATIENT
  Age: 27 Year
  Sex: Female

DRUGS (5)
  1. OXYCODONE HYDROCHLORIDE (SIMILAR TO NDA 22-272) [Suspect]
     Indication: DRUG ABUSE
     Dosage: UNK, SEE TEXT
     Route: 065
  2. COCAINE [Suspect]
     Indication: DRUG ABUSE
     Dosage: UNK, SEE TEXT
     Route: 065
  3. MARIJUANA [Suspect]
     Indication: DRUG ABUSE
     Dosage: UNK, SEE TEXT
     Route: 065
  4. METHAMPHETAMINE [Suspect]
     Indication: DRUG ABUSE
     Dosage: UNK, SEE TEXT
     Route: 065
  5. METHYLENEDIOXYMETHAMPHETAMINE [Suspect]
     Indication: DRUG ABUSE
     Dosage: UNK, SEE TEXT
     Route: 065

REACTIONS (1)
  - Substance abuse [Unknown]
